FAERS Safety Report 20004011 (Version 1)
Quarter: 2021Q4

REPORT INFORMATION
  Report Type: Spontaneous
  Country: US (occurrence: US)
  Receive Date: 20211028
  Receipt Date: 20211028
  Transmission Date: 20220304
  Serious: Yes (Other)
  Sender: FDA-Public Use
  Company Number: US-GALDERMA-US2021017967

PATIENT

DRUGS (4)
  1. DOXYCYCLINE [Suspect]
     Active Substance: DOXYCYCLINE
     Indication: COVID-19
     Dosage: 1 DOSAGE FORM
     Route: 065
  2. DEXAMETHASONE [Concomitant]
     Active Substance: DEXAMETHASONE
     Indication: COVID-19
  3. REMDESIVIR [Concomitant]
     Active Substance: REMDESIVIR
     Indication: COVID-19
  4. TOCILIZUMAB [Concomitant]
     Active Substance: TOCILIZUMAB
     Indication: COVID-19

REACTIONS (6)
  - Acute respiratory failure [Recovered/Resolved]
  - Renal impairment [Recovered/Resolved]
  - Anuria [Recovered/Resolved]
  - Acute respiratory distress syndrome [Recovered/Resolved]
  - Hypervolaemia [Recovered/Resolved]
  - Intentional product use issue [Recovered/Resolved]
